FAERS Safety Report 16618589 (Version 2)
Quarter: 2019Q3

REPORT INFORMATION
  Report Type: Spontaneous
  Country: NL (occurrence: NL)
  Receive Date: 20190723
  Receipt Date: 20190809
  Transmission Date: 20191004
  Serious: Yes (Other)
  Sender: FDA-Public Use
  Company Number: NL-TEVA-2019-NL-1081099

PATIENT
  Sex: Male
  Weight: 67 kg

DRUGS (1)
  1. SPIRONOLACTON TABLET, 25 MG (MILLIGRAM) [Suspect]
     Active Substance: SPIRONOLACTONE
     Indication: OEDEMA
     Dosage: 1X PER DAY, 25 MG
     Dates: start: 201504, end: 201812

REACTIONS (2)
  - Asthenospermia [Recovered/Resolved]
  - Oligospermia [Recovered/Resolved]
